FAERS Safety Report 8925070 (Version 1)
Quarter: 2012Q4

REPORT INFORMATION
  Report Type: Spontaneous
  Country: JP (occurrence: None)
  Receive Date: 20121116
  Receipt Date: 20121116
  Transmission Date: 20130627
  Serious: Yes (Other)
  Sender: FDA-Public Use
  Company Number: DSA_60872_2012

PATIENT
  Age: 77 Year
  Sex: Male
  Weight: 56 kg

DRUGS (35)
  1. FLUOROURACIL (FLUOROURACIL) [Suspect]
     Indication: COLON CANCER
     Dosage: (384 mg/body, every cycle Intravenous bolus)
     Route: 040
     Dates: start: 20110420, end: 20110420
  2. FLUOROURACIL (FLUOROURACIL) [Suspect]
     Indication: COLON CANCER
     Dosage: (2310 mg/body Intravenous drip)
     Route: 041
     Dates: start: 20110420, end: 20110420
  3. FLUOROURACIL (FLUOROURACIL) [Suspect]
     Indication: COLON CANCER
     Dosage: (384 mg/body, every cycle Intravenous bolus)
     Route: 040
     Dates: start: 20110509, end: 20110509
  4. FLUOROURACIL (FLUOROURACIL) [Suspect]
     Indication: COLON CANCER
     Dosage: (2310 mg/body Intravenous drip)
     Route: 041
     Dates: start: 20110509, end: 20110509
  5. FLUOROURACIL (FLUOROURACIL) [Suspect]
     Indication: COLON CANCER
     Route: 040
     Dates: start: 20110525, end: 20110525
  6. FLUOROURACIL (FLUOROURACIL) [Suspect]
     Indication: COLON CANCER
     Dosage: (3050 mg/body Intravenous drip)
     Route: 041
     Dates: start: 20110525, end: 20110525
  7. FLUOROURACIL (FLUOROURACIL) [Suspect]
     Indication: COLON CANCER
     Dosage: 633 mg/body, every cycle Intravenous bolus)
     Route: 040
     Dates: start: 20110608, end: 20110608
  8. FLUOROURACIL (FLUOROURACIL) [Suspect]
     Indication: COLON CANCER
     Dosage: 3799 mg/body Intravenous drip)
     Route: 041
     Dates: start: 20110629, end: 20110629
  9. FLUOROURACIL (FLUOROURACIL) [Suspect]
     Indication: COLON CANCER
     Dosage: (378 mg/body, every cycle Intravenous bolus)
     Route: 040
     Dates: start: 20110713, end: 20110713
  10. FLUOROURACIL (FLUOROURACIL) [Suspect]
     Indication: COLON CANCER
     Dosage: (2273 mg/body Intravenous drip)
     Route: 041
     Dates: start: 20110713, end: 20110713
  11. FLUOROURACIL (FLUOROURACIL) [Suspect]
     Indication: COLON CANCER
     Dosage: 378 mg/body, every cycle Intravenous bolus)
     Route: 040
     Dates: start: 20110803, end: 20110803
  12. FLUOROURACIL (FLUOROURACIL) [Suspect]
     Indication: COLON CANCER
     Dosage: (2273 mg/body Intravenous drip)
     Route: 041
     Dates: start: 20110803, end: 20110803
  13. FLUOROURACIL (FLUOROURACIL) [Suspect]
     Indication: COLON CANCER
     Dosage: (378 mg/body Intravenous bolus)
     Route: 040
     Dates: start: 20110831, end: 20110831
  14. FLUOROURACIL (FLUOROURACIL) [Suspect]
     Indication: COLON CANCER
     Dosage: (2273 mg/body Intravenous drip)
     Route: 041
     Dates: start: 20110831, end: 20110831
  15. FLUOROURACIL (FLUOROURACIL) [Suspect]
     Indication: COLON CANCER
     Dosage: (378 mg/body Intravenous bolus)
     Route: 040
     Dates: start: 20110914, end: 20110914
  16. FLUOROURACIL (FLUOROURACIL) [Suspect]
     Indication: COLON CANCER
     Dosage: (2273 mg/body Intravenous drip)
     Route: 041
     Dates: start: 20110914, end: 20110914
  17. FLUOROURACIL (FLUOROURACIL) [Suspect]
     Indication: COLON CANCER
     Dosage: (378 mg/body Intravenous bolus)
     Route: 040
     Dates: start: 20110928, end: 20110928
  18. FLUOROURACIL (FLUOROURACIL) [Suspect]
     Indication: COLON CANCER
     Dosage: (2273 mg/body Intravenous drip)
     Route: 041
     Dates: start: 20110928, end: 20110928
  19. FLUOROURACIL (FLUOROURACIL) [Suspect]
     Indication: COLON CANCER
     Dosage: (378 mg/body Intravenous bolus)
     Route: 040
     Dates: start: 20111012, end: 20111012
  20. FLUOROURACIL (FLUOROURACIL) [Suspect]
     Indication: COLON CANCER
     Dosage: 2273 mg/body Intravenous drip)
     Route: 041
     Dates: start: 20111012, end: 20111012
  21. OXALIPLATIN (OXALIPLATIN) [Suspect]
     Indication: COLON CANCER
     Route: 041
     Dates: start: 20110420, end: 20110420
  22. OXALIPLATIN (OXALIPLATIN) [Suspect]
     Indication: COLON CANCER
     Dosage: (82 mg/body, every cycle Intravenous drip)
     Route: 041
     Dates: start: 20110509, end: 20110509
  23. OXALIPLATIN (OXALIPLATIN) [Suspect]
     Indication: COLON CANCER
     Dosage: (108 mg/body Intravenous drip)
     Route: 041
     Dates: start: 20110525, end: 20110525
  24. OXALIPLATIN (OXALIPLATIN) [Suspect]
     Indication: COLON CANCER
     Dosage: (134 mg/body Intravenous drip)
     Route: 041
     Dates: start: 20110608, end: 20110608
  25. OXALIPLATIN (OXALIPLATIN) [Suspect]
     Indication: COLON CANCER
     Dosage: (80 mg/body Intravenous drip)
     Route: 041
     Dates: start: 20110629, end: 20110629
  26. OXALIPLATIN (OXALIPLATIN) [Suspect]
     Indication: COLON CANCER
     Dosage: (80 mg/body Intravenous drip)
     Route: 041
     Dates: start: 20110713, end: 20110713
  27. OXALIPLATIN (OXALIPLATIN) [Suspect]
     Indication: COLON CANCER
     Dosage: (80 mg/body Intravenous drip)
     Route: 041
     Dates: start: 20110803, end: 20110803
  28. OXALIPLATIN (OXALIPLATIN) [Suspect]
     Indication: COLON CANCER
     Dosage: (80 mg/body Intravenous drip)
     Route: 041
     Dates: start: 20110831, end: 20110831
  29. OXALIPLATIN (OXALIPLATIN) [Suspect]
     Indication: COLON CANCER
     Dosage: (80 mg/body Intravenous drip)
     Route: 041
     Dates: start: 20110914, end: 20110914
  30. OXALIPLATIN (OXALIPLATIN) [Suspect]
     Indication: COLON CANCER
     Dosage: (80 mg/body Intravenous drip)
     Route: 041
     Dates: start: 20110928, end: 20110928
  31. OXALIPLATIN (OXALIPLATIN) [Suspect]
     Indication: COLON CANCER
     Dosage: (80 mg/body Intravenous drip)
     Route: 041
     Dates: start: 20111012, end: 20111012
  32. CALCIUM LEVOFOLINATE [Concomitant]
  33. AVASTIN /01555201/ [Concomitant]
  34. DEXART [Concomitant]
  35. GRANISETRON [Concomitant]

REACTIONS (3)
  - White blood cell count decreased [None]
  - Neuropathy peripheral [None]
  - Febrile neutropenia [None]
